FAERS Safety Report 18806970 (Version 2)
Quarter: 2021Q1

REPORT INFORMATION
  Report Type: Report from Study
  Country: None (occurrence: NL)
  Receive Date: 20210128
  Receipt Date: 20210205
  Transmission Date: 20210419
  Serious: Yes (Hospitalization)
  Sender: FDA-Public Use
  Company Number: NL-ABBVIE-21K-114-3749282-00

PATIENT
  Sex: Male

DRUGS (3)
  1. DUODOPA [Suspect]
     Active Substance: CARBIDOPA\LEVODOPA
     Dosage: CD 3.9 ML/H CND 2.1 ML/H
     Route: 050
     Dates: start: 202101, end: 202101
  2. DUODOPA [Suspect]
     Active Substance: CARBIDOPA\LEVODOPA
     Indication: PARKINSON^S DISEASE
     Dosage: MD: 3.0; CD: 3.6 ML/H; ED: 1.0 ML  NIGHT MD: 8.8; ED: 1.0 ML; CND: 1.8 ML/H
     Route: 050
     Dates: start: 20210111, end: 202101
  3. DUODOPA [Suspect]
     Active Substance: CARBIDOPA\LEVODOPA
     Dosage: NIGHT MD 8.8 ML ED 1.0ML CND 2.3ML/H CND 2.5 ML/H
     Route: 050
     Dates: start: 202101

REACTIONS (3)
  - Stoma site pain [Not Recovered/Not Resolved]
  - Device placement issue [Unknown]
  - Stoma site discharge [Not Recovered/Not Resolved]

NARRATIVE: CASE EVENT DATE: 202101
